FAERS Safety Report 22397556 (Version 3)
Quarter: 2024Q1

REPORT INFORMATION
  Report Type: Report from Study
  Country: US (occurrence: US)
  Receive Date: 20230602
  Receipt Date: 20240113
  Transmission Date: 20240410
  Serious: Yes (Hospitalization, Other)
  Sender: FDA-Public Use
  Company Number: US-ABBVIE-5187914

PATIENT
  Sex: Female

DRUGS (1)
  1. RINVOQ [Suspect]
     Active Substance: UPADACITINIB
     Indication: Product used for unknown indication
     Dosage: FORM STRENGTH: 15 MILLIGRAM
     Route: 048
     Dates: start: 20210601

REACTIONS (6)
  - Neoplasm malignant [Unknown]
  - Pancreatitis [Unknown]
  - Full blood count abnormal [Unknown]
  - Systemic lupus erythematosus [Unknown]
  - Anaemia of chronic disease [Unknown]
  - Off label use [Unknown]
